FAERS Safety Report 8395975-2 (Version None)
Quarter: 2012Q2

REPORT INFORMATION
  Report Type: 
  Country: None (occurrence: None)
  Receive Date: 20120530
  Receipt Date: 20120521
  Transmission Date: 20120825
  Serious: Yes (Hospitalization, Other)
  Sender: FDA-Public Use
  Company Number: US-ROCHE-1023072

PATIENT
  Sex: Male
  Weight: 135.5 kg

DRUGS (6)
  1. COUMADIN [Concomitant]
  2. BENADRYL [Concomitant]
     Indication: PRURITUS
     Route: 048
     Dates: start: 20120518
  3. ANTIBIOTIC (UNK INGREDIENTS) [Concomitant]
     Route: 042
  4. BLOOD PRESSURE MEDICATIONS NOS [Concomitant]
  5. AVASTIN [Suspect]
     Dates: start: 20110501
  6. AVASTIN [Suspect]
     Indication: METASTATIC RENAL CELL CARCINOMA
     Route: 042
     Dates: start: 20110908, end: 20111206

REACTIONS (7)
  - RASH MACULAR [None]
  - GALLBLADDER DISORDER [None]
  - BLOOD PRESSURE INCREASED [None]
  - OEDEMA PERIPHERAL [None]
  - MUSCLE SPASMS [None]
  - HEADACHE [None]
  - EPISTAXIS [None]
